FAERS Safety Report 9795369 (Version 1)
Quarter: 2014Q1

REPORT INFORMATION
  Report Type: Spontaneous
  Country: US (occurrence: US)
  Receive Date: 20140103
  Receipt Date: 20140103
  Transmission Date: 20141002
  Serious: Yes (Hospitalization)
  Sender: FDA-Public Use
  Company Number: US-SUN PHARMACEUTICAL INDUSTRIES LTD-2013SUN05313

PATIENT
  Age: 77 Year
  Sex: Male

DRUGS (4)
  1. ALENDRONATE SODIUM 70MG TABLET [Suspect]
     Indication: BONE DENSITY DECREASED
     Dosage: 70 MG, WEEKLY
     Route: 048
  2. ALENDRONATE SODIUM 70MG TABLET [Suspect]
     Dosage: 70 MG, QD
     Route: 048
  3. OMEPRAZOLE [Concomitant]
     Dosage: JUST BEFORE GOING TO SLEEP AT NIGHT
  4. ASPIRIN [Concomitant]

REACTIONS (3)
  - Haemoptysis [Recovering/Resolving]
  - Laryngeal ulceration [Recovering/Resolving]
  - Accidental overdose [Recovering/Resolving]
